FAERS Safety Report 8201293-5 (Version None)
Quarter: 2012Q1

REPORT INFORMATION
  Report Type: 
  Country: None (occurrence: None)
  Receive Date: 20120312
  Receipt Date: 20120307
  Transmission Date: 20120608
  Serious: Yes (Other)
  Sender: FDA-Public Use
  Company Number: PHHY2012AR020728

PATIENT
  Sex: Male

DRUGS (1)
  1. ONBREZ [Suspect]
     Indication: RESPIRATORY DISORDER
     Dosage: 150 UG, BID
     Dates: start: 20111101

REACTIONS (1)
  - LUNG NEOPLASM [None]
